FAERS Safety Report 14154003 (Version 1)
Quarter: 2017Q4

REPORT INFORMATION
  Report Type: Spontaneous
  Country: US (occurrence: US)
  Receive Date: 20171102
  Receipt Date: 20171102
  Transmission Date: 20180321
  Serious: Yes (Death, Hospitalization, Other)
  Sender: FDA-Public Use
  Company Number: US-PFIZER INC-2017471036

PATIENT
  Age: 47 Year
  Sex: Female
  Weight: 121 kg

DRUGS (1)
  1. CAMPTOSAR [Suspect]
     Active Substance: IRINOTECAN HYDROCHLORIDE
     Indication: COLON CANCER
     Dosage: 400 MG, EVERY 2 WEEKS
     Route: 042

REACTIONS (1)
  - Pulmonary embolism [Fatal]
